FAERS Safety Report 25813186 (Version 3)
Quarter: 2025Q3

REPORT INFORMATION
  Report Type: Report from Study
  Country: BR (occurrence: BR)
  Receive Date: 20250917
  Receipt Date: 20250926
  Transmission Date: 20251021
  Serious: Yes (Other)
  Sender: MYLAN
  Company Number: BR-MYLANLABS-2025M1078414

PATIENT
  Sex: Female
  Weight: 54 kg

DRUGS (3)
  1. ALPRAZOLAM [Suspect]
     Active Substance: ALPRAZOLAM
     Indication: Sleep disorder
     Dosage: 0.5 MILLIGRAM, PM (PER DAY, AT NIGHT)
  2. ALPRAZOLAM [Suspect]
     Active Substance: ALPRAZOLAM
     Dosage: 1 MILLIGRAM, PM (PER DAY, AT NIGHT; 2 TABLETS OF 0.5 MG)
  3. ALPRAZOLAM [Suspect]
     Active Substance: ALPRAZOLAM
     Indication: Sleep disorder
     Dosage: 1 MILLIGRAM, PM (AT NIGHT)
     Dates: start: 2025, end: 2025

REACTIONS (11)
  - Gastrointestinal carcinoma [Recovered/Resolved]
  - Lung neoplasm malignant [Recovered/Resolved]
  - Weight decreased [Unknown]
  - Insomnia [Unknown]
  - Nervousness [Recovered/Resolved]
  - Drug ineffective [Unknown]
  - Product use issue [Not Recovered/Not Resolved]
  - Product dispensing error [Recovered/Resolved]
  - Product label issue [Not Recovered/Not Resolved]
  - Product packaging quantity issue [Unknown]
  - Product counterfeit [Not Recovered/Not Resolved]
